FAERS Safety Report 13050903 (Version 1)
Quarter: 2016Q4

REPORT INFORMATION
  Report Type: Spontaneous
  Country: US (occurrence: US)
  Receive Date: 20161221
  Receipt Date: 20161221
  Transmission Date: 20170207
  Serious: No
  Sender: FDA-Public Use
  Company Number: US-ENDO PHARMACEUTICALS INC.-2016-002842

PATIENT
  Sex: Male
  Weight: 94.43 kg

DRUGS (4)
  1. OPANA ER [Suspect]
     Active Substance: OXYMORPHONE HYDROCHLORIDE
     Route: 048
     Dates: start: 2012
  2. LYRICA [Concomitant]
     Active Substance: PREGABALIN
     Indication: PAIN
  3. OXYCODONE/APAP [Concomitant]
     Active Substance: ACETAMINOPHEN\OXYCODONE HYDROCHLORIDE
     Indication: PRODUCT USED FOR UNKNOWN INDICATION
  4. OPANA ER [Suspect]
     Active Substance: OXYMORPHONE HYDROCHLORIDE
     Indication: PAIN
     Route: 048
     Dates: start: 2011, end: 2012

REACTIONS (3)
  - Inappropriate schedule of drug administration [Not Recovered/Not Resolved]
  - Drug screen positive [Unknown]
  - Drug ineffective [Unknown]

NARRATIVE: CASE EVENT DATE: 2012
